FAERS Safety Report 24973251 (Version 2)
Quarter: 2025Q1

REPORT INFORMATION
  Report Type: Spontaneous
  Country: FR (occurrence: FR)
  Receive Date: 20250216
  Receipt Date: 20250218
  Transmission Date: 20250409
  Serious: Yes (Other)
  Sender: ABBVIE
  Company Number: None

PATIENT
  Age: 1 Month
  Sex: Female

DRUGS (2)
  1. ESCITALOPRAM OXALATE [Suspect]
     Active Substance: ESCITALOPRAM OXALATE
     Indication: Mixed anxiety and depressive disorder
     Route: 065
  2. OXAZEPAM [Suspect]
     Active Substance: OXAZEPAM
     Indication: Mixed anxiety and depressive disorder
     Route: 065

REACTIONS (3)
  - Loss of consciousness [Recovered/Resolved]
  - Product administered to patient of inappropriate age [Unknown]
  - Hypotonia [Recovered/Resolved]
